FAERS Safety Report 5796653-6 (Version None)
Quarter: 2008Q3

REPORT INFORMATION
  Report Type: 
  Country: None (occurrence: None)
  Receive Date: 20080701
  Receipt Date: 20080621
  Transmission Date: 20090109
  Serious: Yes (Other)
  Sender: FDA-Public Use
  Company Number: BR-JNJFOC-20080606712

PATIENT
  Age: 2 Year
  Sex: Male
  Weight: 14 kg

DRUGS (1)
  1. HALDOL [Suspect]
     Indication: ACCIDENTAL EXPOSURE

REACTIONS (2)
  - ACCIDENTAL DRUG INTAKE BY CHILD [None]
  - OPISTHOTONUS [None]
